FAERS Safety Report 14706667 (Version 2)
Quarter: 2018Q2

REPORT INFORMATION
  Report Type: Spontaneous
  Country: FR (occurrence: FR)
  Receive Date: 20180402
  Receipt Date: 20180508
  Transmission Date: 20180711
  Serious: Yes (Other)
  Sender: FDA-Public Use
  Company Number: FR-MYLANLABS-2018M1019753

PATIENT
  Sex: Female

DRUGS (2)
  1. TAMOXIFENE MYLAN 20 MG, COMPRIM? [Suspect]
     Active Substance: TAMOXIFEN
     Indication: BREAST CANCER FEMALE
     Dosage: UNK
  2. TAMOXIFENE MYLAN 20 MG, COMPRIM? [Suspect]
     Active Substance: TAMOXIFEN
     Dosage: 10 MG, QD

REACTIONS (5)
  - Hot flush [Recovered/Resolved]
  - Fatigue [Recovered/Resolved]
  - Dysarthria [Recovered/Resolved]
  - Weight increased [Unknown]
  - Cerebral disorder [Recovered/Resolved]

NARRATIVE: CASE EVENT DATE: 2016
